FAERS Safety Report 25402953 (Version 1)
Quarter: 2025Q2

REPORT INFORMATION
  Report Type: Spontaneous
  Country: US (occurrence: US)
  Receive Date: 20250605
  Receipt Date: 20250605
  Transmission Date: 20250717
  Serious: No
  Sender: SANOFI AVENTIS
  Company Number: US-SA-2025SA155853

PATIENT
  Age: 74 Year
  Sex: Male

DRUGS (9)
  1. DUPIXENT [Suspect]
     Active Substance: DUPILUMAB
     Indication: Autonomic neuropathy
     Dosage: 300 MG, Q3W
     Route: 058
  2. DUPIXENT [Suspect]
     Active Substance: DUPILUMAB
     Route: 058
  3. COENZYME Q10 [Concomitant]
     Active Substance: DIETARY SUPPLEMENT\UBIDECARENONE
  4. DULOXETINE [Concomitant]
     Active Substance: DULOXETINE
  5. FUROSEMIDE [Concomitant]
     Active Substance: FUROSEMIDE
  6. METOPROLOL [Concomitant]
     Active Substance: METOPROLOL
  7. MONTELUKAST [Concomitant]
     Active Substance: MONTELUKAST
  8. PRAVASTATIN [Concomitant]
     Active Substance: PRAVASTATIN
  9. VALSARTAN [Concomitant]
     Active Substance: VALSARTAN

REACTIONS (5)
  - Toothache [Unknown]
  - Nasopharyngitis [Unknown]
  - Balance disorder [Unknown]
  - Dry eye [Unknown]
  - Product use in unapproved indication [Unknown]

NARRATIVE: CASE EVENT DATE: 20250401
